FAERS Safety Report 19595391 (Version 1)
Quarter: 2021Q3

REPORT INFORMATION
  Report Type: Spontaneous
  Country: JP (occurrence: JP)
  Receive Date: 20210722
  Receipt Date: 20210722
  Transmission Date: 20211014
  Serious: Yes (Other)
  Sender: FDA-Public Use
  Company Number: JP-ACACIA PHARMA LIMITED-2114160

PATIENT
  Age: 77 Year
  Sex: Male

DRUGS (3)
  1. XYLOCAINE #1 [Concomitant]
     Active Substance: LIDOCAINE
     Route: 042
  2. ROCURONIUM BROMIDE. [Suspect]
     Active Substance: ROCURONIUM BROMIDE
     Route: 042
     Dates: start: 20210526
  3. BYFAVO [Suspect]
     Active Substance: REMIMAZOLAM BESYLATE
     Indication: GENERAL ANAESTHESIA
     Route: 042
     Dates: start: 20210526

REACTIONS (4)
  - Hypotension [Recovered/Resolved]
  - Hypoventilation [Recovered/Resolved]
  - Anaphylactoid shock [Recovered/Resolved]
  - Erythema [Recovered/Resolved]

NARRATIVE: CASE EVENT DATE: 20210526
